FAERS Safety Report 5212733-8 (Version None)
Quarter: 2006Q4

REPORT INFORMATION
  Report Type: 
  Country: None (occurrence: None)
  Receive Date: 20061115
  Receipt Date: 20060815
  Transmission Date: 20070319
  Serious: No
  Sender: FDA-Public Use
  Company Number: 200615223BWH

PATIENT
  Age: 54 Year
  Sex: Female

DRUGS (2)
  1. NEXAVAR [Suspect]
     Indication: NEOPLASM MALIGNANT
     Dosage: 400 MG, BID; ORAL
     Route: 048
     Dates: start: 20060807
  2. PYRIDOXINE HCL [Suspect]

REACTIONS (1)
  - RASH GENERALISED [None]
